FAERS Safety Report 6136739-X (Version None)
Quarter: 2009Q1

REPORT INFORMATION
  Report Type: 
  Country: None (occurrence: None)
  Receive Date: 20090325
  Receipt Date: 20090317
  Transmission Date: 20090719
  Serious: Yes (Other)
  Sender: FDA-Public Use
  Company Number: 2009S1004863

PATIENT
  Age: 21 Year
  Sex: Female

DRUGS (2)
  1. AMNESTEEM [Suspect]
     Dosage: 40 MG;TWICE A DAY; ORAL
     Route: 048
     Dates: start: 20080828, end: 20090101
  2. ORAL CONTRACEPTIVE NOS (CON.) [Concomitant]

REACTIONS (3)
  - DRUG EXPOSURE DURING PREGNANCY [None]
  - PREGNANCY ON ORAL CONTRACEPTIVE [None]
  - TREATMENT NONCOMPLIANCE [None]
